FAERS Safety Report 8419908-5 (Version None)
Quarter: 2012Q2

REPORT INFORMATION
  Report Type: 
  Country: None (occurrence: None)
  Receive Date: 20120607
  Receipt Date: 20120525
  Transmission Date: 20120825
  Serious: No
  Sender: FDA-Public Use
  Company Number: US-ASTRAZENECA-2012SE34096

PATIENT
  Age: 76 Year
  Sex: Female
  Weight: 74.4 kg

DRUGS (5)
  1. XANAX [Concomitant]
     Indication: SLEEP DISORDER
     Route: 048
  2. CRESTOR [Suspect]
     Route: 048
  3. APRESOLAM [Concomitant]
     Indication: ANXIETY
     Route: 048
  4. ATENOLOL [Suspect]
     Indication: BLOOD PRESSURE ABNORMAL
     Route: 048
  5. ATENOLOL [Suspect]
     Route: 048

REACTIONS (5)
  - ADVERSE EVENT [None]
  - HEART RATE INCREASED [None]
  - INSOMNIA [None]
  - HYPERTENSION [None]
  - DYSPNOEA [None]
